FAERS Safety Report 7279699-0 (Version None)
Quarter: 2011Q1

REPORT INFORMATION
  Report Type: 
  Country: None (occurrence: None)
  Receive Date: 20110208
  Receipt Date: 20110131
  Transmission Date: 20110831
  Serious: Yes (Other)
  Sender: FDA-Public Use
  Company Number: SE-AMGEN-SWECT2011007033

PATIENT
  Age: 76 Year
  Sex: Female

DRUGS (1)
  1. ETANERCEPT [Suspect]
     Indication: RHEUMATOID ARTHRITIS
     Dosage: UNK, NOT SPECIFIED
     Route: 058
     Dates: start: 19991006

REACTIONS (2)
  - BONE NEOPLASM [None]
  - CONNECTIVE TISSUE NEOPLASM [None]
